FAERS Safety Report 7569762-9 (Version None)
Quarter: 2011Q2

REPORT INFORMATION
  Report Type: 
  Country: None (occurrence: None)
  Receive Date: 20110620
  Receipt Date: 20110609
  Transmission Date: 20111010
  Serious: Yes (Other)
  Sender: FDA-Public Use
  Company Number: JPI-P-015370

PATIENT
  Age: 30 Year
  Sex: Female

DRUGS (2)
  1. XYREM [Suspect]
     Indication: NARCOLEPSY
     Dosage: ORAL ; 7.5 GM (3.75 GM,2 IN 1 D),ORAL
     Route: 048
     Dates: start: 20110330, end: 20110101
  2. XYREM [Suspect]
     Indication: NARCOLEPSY
     Dosage: ORAL ; 7.5 GM (3.75 GM,2 IN 1 D),ORAL
     Route: 048
     Dates: start: 20110101

REACTIONS (5)
  - INTERVERTEBRAL DISC INJURY [None]
  - PAIN IN JAW [None]
  - ROAD TRAFFIC ACCIDENT [None]
  - ANXIETY [None]
  - CONDITION AGGRAVATED [None]
